FAERS Safety Report 19655657 (Version 1)
Quarter: 2021Q3

REPORT INFORMATION
  Report Type: Spontaneous
  Country: US (occurrence: US)
  Receive Date: 20210804
  Receipt Date: 20210804
  Transmission Date: 20211014
  Serious: Yes (Life-Threatening)
  Sender: FDA-Public Use
  Company Number: None

PATIENT
  Age: 12 Year
  Sex: Male
  Weight: 72 kg

DRUGS (2)
  1. DAYTRANA [Suspect]
     Active Substance: METHYLPHENIDATE
     Indication: AUTISM SPECTRUM DISORDER
     Dosage: ?          QUANTITY:30 PATCH(ES);?
     Route: 062
     Dates: start: 20160701
  2. DAYTRANA [Suspect]
     Active Substance: METHYLPHENIDATE
     Indication: ATTENTION DEFICIT HYPERACTIVITY DISORDER
     Dosage: ?          QUANTITY:30 PATCH(ES);?
     Route: 062
     Dates: start: 20160701

REACTIONS (2)
  - Product adhesion issue [None]
  - Product dose omission issue [None]

NARRATIVE: CASE EVENT DATE: 20210804
